FAERS Safety Report 7633396-8 (Version None)
Quarter: 2011Q3

REPORT INFORMATION
  Report Type: 
  Country: None (occurrence: None)
  Receive Date: 20110725
  Receipt Date: 20101214
  Transmission Date: 20111222
  Serious: No
  Sender: FDA-Public Use
  Company Number: US-BRISTOL-MYERS SQUIBB COMPANY-15441819

PATIENT
  Age: 49 Year
  Sex: Female

DRUGS (1)
  1. SPRYCEL [Suspect]
     Indication: CHRONIC MYELOID LEUKAEMIA

REACTIONS (6)
  - DIZZINESS [None]
  - DYSGEUSIA [None]
  - LOSS OF CONSCIOUSNESS [None]
  - DRY MOUTH [None]
  - ASTHENIA [None]
  - HEADACHE [None]
